FAERS Safety Report 10285427 (Version 1)
Quarter: 2014Q3

REPORT INFORMATION
  Report Type: Spontaneous
  Country: IT (occurrence: IT)
  Receive Date: 20140708
  Receipt Date: 20140708
  Transmission Date: 20150326
  Serious: Yes (Hospitalization)
  Sender: FDA-Public Use
  Company Number: PHHY2014IT082603

PATIENT
  Sex: Female

DRUGS (10)
  1. METFORMIN [Suspect]
     Active Substance: METFORMIN HYDROCHLORIDE
     Dates: start: 20140101, end: 20140416
  2. COUMADIN [Concomitant]
     Active Substance: WARFARIN SODIUM
  3. ALLOPURINOL. [Concomitant]
     Active Substance: ALLOPURINOL
  4. PANTOPRAZOLE [Concomitant]
     Active Substance: PANTOPRAZOLE SODIUM
  5. INSULIN [Concomitant]
     Active Substance: INSULIN NOS
  6. LASIX [Concomitant]
     Active Substance: FUROSEMIDE
  7. NEBIVOLOL [Concomitant]
     Active Substance: NEBIVOLOL
  8. TRIATEC [Concomitant]
     Active Substance: RAMIPRIL
  9. NORVASC [Concomitant]
     Active Substance: AMLODIPINE BESYLATE
  10. LUVION [Concomitant]
     Active Substance: CANRENONE

REACTIONS (1)
  - Hypoglycaemic coma [Recovered/Resolved]

NARRATIVE: CASE EVENT DATE: 20140416
